FAERS Safety Report 8864765 (Version 1)
Quarter: 2012Q4

REPORT INFORMATION
  Report Type: 
  Country: US (occurrence: US)
  Receive Date: 20121024
  Receipt Date: 20121024
  Transmission Date: 20130627
  Serious: No
  Sender: FDA-Public Use
  Company Number: US-AMGEN-USASP2011069338

PATIENT
  Age: 62 Year
  Sex: Male
  Weight: 86.17 kg

DRUGS (12)
  1. ENBREL [Suspect]
     Indication: PRODUCT USED FOR UNKNOWN INDICATION
     Dosage: 50 mg, qwk
     Route: 058
  2. ENBREL [Suspect]
     Dosage: 50 mg, qwk
     Route: 058
     Dates: start: 20111228
  3. ADVICOR [Concomitant]
     Dosage: UNK
  4. LISINOPRIL [Concomitant]
     Dosage: 2.5 mg, UNK
  5. LEVOTHYROXIN [Concomitant]
     Dosage: 25 mug, UNK
  6. SPIRONOLACTON [Concomitant]
     Dosage: 25 mg, UNK
  7. AMITRIPTYLIN [Concomitant]
     Dosage: 25 mg, UNK
  8. GLUCOSAMINE + CHONDROITIN          /01430901/ [Concomitant]
     Dosage: UNK
  9. VITAMIN D /00107901/ [Concomitant]
     Dosage: 1000 IU, UNK
  10. ASA ARTHRITIS STRENGTH ASPIRIN [Concomitant]
     Dosage: 81 mg, UNK
  11. MULTIVITAMIN                       /00097801/ [Concomitant]
     Dosage: UNK
  12. MUCINEX [Concomitant]
     Dosage: 1200 mg, UNK

REACTIONS (1)
  - Atypical pneumonia [Unknown]
